FAERS Safety Report 7959207-9 (Version None)
Quarter: 2011Q4

REPORT INFORMATION
  Report Type: 
  Country: None (occurrence: None)
  Receive Date: 20111206
  Receipt Date: 20111130
  Transmission Date: 20120403
  Serious: Yes (Other)
  Sender: FDA-Public Use
  Company Number: US-PFIZER INC-2011292671

PATIENT
  Sex: Male
  Weight: 70.295 kg

DRUGS (8)
  1. WARFARIN [Concomitant]
     Dosage: UNK
  2. ACETYLSALICYLIC ACID [Concomitant]
     Dosage: UNK
  3. TRAVATAN [Concomitant]
     Indication: EYE DISORDER
     Dosage: UNK
  4. SIMVASTATIN [Concomitant]
     Dosage: UNK
  5. VESICARE [Concomitant]
     Dosage: UNK
  6. TOVIAZ [Suspect]
     Indication: NOCTURIA
     Dosage: 8 MG, 1X/DAY
     Route: 048
     Dates: start: 20111125, end: 20111125
  7. CARVEDILOL [Concomitant]
     Dosage: UNK
  8. TERAZOSIN [Concomitant]
     Dosage: UNK

REACTIONS (1)
  - BLOOD PRESSURE INCREASED [None]
